APPROVED DRUG PRODUCT: METHOTREXATE SODIUM
Active Ingredient: METHOTREXATE SODIUM
Strength: EQ 2.5MG BASE
Dosage Form/Route: TABLET;ORAL
Application: A210040 | Product #001
Applicant: AMNEAL PHARMACEUTICALS OF NEW YORK LLC
Approved: Dec 22, 2017 | RLD: No | RS: No | Type: DISCN